FAERS Safety Report 9430276 (Version 1)
Quarter: 2013Q3

REPORT INFORMATION
  Report Type: Report from Study
  Country: US (occurrence: US)
  Receive Date: 20130730
  Receipt Date: 20130730
  Transmission Date: 20140515
  Serious: No
  Sender: FDA-Public Use
  Company Number: US-ABBOTT-13P-163-1078225-00

PATIENT
  Sex: Female

DRUGS (6)
  1. NIASPAN (COATED) [Suspect]
     Indication: TYPE IIA HYPERLIPIDAEMIA
     Dosage: 1000MG ONE TAB AT BEDTIME
     Route: 048
     Dates: start: 201211
  2. LIPITOR [Concomitant]
     Indication: PRODUCT USED FOR UNKNOWN INDICATION
  3. AMBIEN [Concomitant]
     Indication: PRODUCT USED FOR UNKNOWN INDICATION
  4. ASA [Concomitant]
     Indication: PRODUCT USED FOR UNKNOWN INDICATION
     Dosage: AT BEDTIME
     Route: 048
  5. ASA [Concomitant]
     Dosage: AT BEDTIME
     Route: 048
  6. NSAID [Concomitant]
     Indication: PRODUCT USED FOR UNKNOWN INDICATION
     Dosage: AT NIGHT

REACTIONS (6)
  - Abdominal discomfort [Recovered/Resolved]
  - Weight increased [Recovered/Resolved]
  - Flushing [Recovered/Resolved]
  - Petechiae [Recovered/Resolved]
  - Contusion [Recovered/Resolved]
  - Hot flush [Recovered/Resolved]
